FAERS Safety Report 14564391 (Version 1)
Quarter: 2018Q1

REPORT INFORMATION
  Report Type: Spontaneous
  Country: DE (occurrence: DE)
  Receive Date: 20180222
  Receipt Date: 20180222
  Transmission Date: 20180509
  Serious: Yes (Other)
  Sender: FDA-Public Use
  Company Number: DE-BAUSCH-BL-2018-004925

PATIENT
  Age: 51 Year
  Sex: Female
  Weight: 64 kg

DRUGS (1)
  1. OFLOXACIN. [Suspect]
     Active Substance: OFLOXACIN
     Indication: PRODUCT USED FOR UNKNOWN INDICATION
     Dosage: 500 MILLIGRAM (MG) PER 8 HOURS (3 X 500 MG)
     Route: 048
     Dates: start: 20090501

REACTIONS (13)
  - Movement disorder [Not Recovered/Not Resolved]
  - Tendonitis [Recovered/Resolved]
  - Pain [Not Recovered/Not Resolved]
  - Angina pectoris [Unknown]
  - Tendon disorder [Not Recovered/Not Resolved]
  - Swelling [Not Recovered/Not Resolved]
  - Photophobia [Recovered/Resolved]
  - Parosmia [Recovered/Resolved]
  - Dyspnoea [Unknown]
  - Tendon pain [Unknown]
  - Arthralgia [Unknown]
  - Cardiac discomfort [Recovered/Resolved]
  - Food intolerance [Recovered/Resolved]

NARRATIVE: CASE EVENT DATE: 2009
